FAERS Safety Report 4346454-0 (Version None)
Quarter: 2004Q2

REPORT INFORMATION
  Report Type: 
  Country: None (occurrence: None)
  Receive Date: 20040426
  Receipt Date: 20030317
  Transmission Date: 20050107
  Serious: Yes (Hospitalization)
  Sender: FDA-Public Use
  Company Number: US-BRISTOL-MYERS SQUIBB COMPANY-12213773

PATIENT
  Age: 3 Year
  Sex: Male
  Weight: 14 kg

DRUGS (3)
  1. PARAPLATIN [Suspect]
     Indication: BRAIN NEOPLASM
     Dosage: AUC 7 = 462MG ON 12MAR, 405MG ON 13MAR, AND 200MG ON 14MAR
     Route: 042
     Dates: start: 20030312, end: 20030314
  2. FLUCONAZOLE [Concomitant]
     Dates: end: 20030315
  3. BACTRIM [Concomitant]

REACTIONS (2)
  - CREATININE RENAL CLEARANCE DECREASED [None]
  - HEPATIC ENZYME INCREASED [None]
